FAERS Safety Report 18882685 (Version 2)
Quarter: 2021Q1

REPORT INFORMATION
  Report Type: Report from Study
  Country: CZ (occurrence: CZ)
  Receive Date: 20210211
  Receipt Date: 20210317
  Transmission Date: 20210420
  Serious: Yes (Hospitalization, Other)
  Sender: FDA-Public Use
  Company Number: CZ-NOVOPROD-785390

PATIENT
  Age: 73 Year
  Sex: Male
  Weight: 91 kg

DRUGS (1)
  1. SEMAGLUTIDE 3 MG [Suspect]
     Active Substance: SEMAGLUTIDE
     Indication: TYPE 2 DIABETES MELLITUS
     Dosage: 3.0,MG,ONCE PER DAY
     Route: 048
     Dates: start: 20210107, end: 20210210

REACTIONS (1)
  - Cholecystitis acute [Not Recovered/Not Resolved]

NARRATIVE: CASE EVENT DATE: 20210128
